FAERS Safety Report 20993276 (Version 1)
Quarter: 2022Q2

REPORT INFORMATION
  Report Type: Spontaneous
  Country: US (occurrence: None)
  Receive Date: 20220622
  Receipt Date: 20220622
  Transmission Date: 20220721
  Serious: Yes (Hospitalization)
  Sender: FDA-Public Use
  Company Number: None

PATIENT
  Sex: Female

DRUGS (18)
  1. GENGRAF [Suspect]
     Active Substance: CYCLOSPORINE
     Indication: Liver transplant
     Dosage: TAKE 4 CAPSULES BY MOUTH TWICE DAILY
     Route: 048
     Dates: start: 20220121
  2. AZATHIOPRINE TAB [Concomitant]
  3. BUSPIRONE TAB [Concomitant]
  4. CANDESARTAN TAB [Concomitant]
  5. DICYCLOMINE CAP [Concomitant]
  6. ESOMEPRAZOLE MAGNESIUM [Concomitant]
     Active Substance: ESOMEPRAZOLE MAGNESIUM
  7. FELODIPINE TAB ER [Concomitant]
  8. FOLIC ACID TAB [Concomitant]
  9. GENEGRAF CAP [Concomitant]
  10. LAMIVUDINE [Concomitant]
     Active Substance: LAMIVUDINE
  11. NISOLDIPINE TAB ER [Concomitant]
  12. FOLIC ACID TAB [Concomitant]
  13. GENGRAF [Concomitant]
     Active Substance: CYCLOSPORINE
  14. LAMIVUDINE [Concomitant]
     Active Substance: LAMIVUDINE
  15. NISOLDIPIEN TAB ER [Concomitant]
  16. PANTOPRAZOLE TAB [Concomitant]
  17. PREDNISONE [Concomitant]
     Active Substance: PREDNISONE
  18. SHINGRIX INJ [Concomitant]

REACTIONS (1)
  - Clavicle fracture [None]
